FAERS Safety Report 15403722 (Version 1)
Quarter: 2018Q3

REPORT INFORMATION
  Report Type: Spontaneous
  Country: US (occurrence: US)
  Receive Date: 20180919
  Receipt Date: 20180919
  Transmission Date: 20181010
  Serious: No
  Sender: FDA-Public Use
  Company Number: US-ALLERGAN-1759118US

PATIENT
  Sex: Male

DRUGS (1)
  1. ACUVAIL [Suspect]
     Active Substance: KETOROLAC TROMETHAMINE
     Indication: EYE PAIN
     Dosage: 1 GTT, UNK
     Route: 047
     Dates: start: 20171006, end: 201710

REACTIONS (4)
  - Off label use [Unknown]
  - Ocular discomfort [Unknown]
  - Drug ineffective for unapproved indication [Unknown]
  - Eye pain [Recovered/Resolved]

NARRATIVE: CASE EVENT DATE: 201710
